FAERS Safety Report 8919018 (Version 1)
Quarter: 2012Q4

REPORT INFORMATION
  Report Type: Spontaneous
  Country: IT (occurrence: None)
  Receive Date: 20121114
  Receipt Date: 20121114
  Transmission Date: 20130627
  Serious: No
  Sender: FDA-Public Use
  Company Number: 1210ITA009393

PATIENT
  Age: 12 Year
  Sex: Male

DRUGS (1)
  1. CEFTIBUTEN [Suspect]
     Indication: PHARYNGOTONSILLITIS
     Dates: start: 20120812, end: 20120813

REACTIONS (3)
  - Rash maculo-papular [None]
  - Rash erythematous [None]
  - Rash generalised [None]
